FAERS Safety Report 6913798-5 (Version None)
Quarter: 2010Q3

REPORT INFORMATION
  Report Type: 
  Country: None (occurrence: None)
  Receive Date: 20100809
  Receipt Date: 20100803
  Transmission Date: 20110219
  Serious: Yes (Life-Threatening, Hospitalization)
  Sender: FDA-Public Use
  Company Number: GB-ROCHE-691916

PATIENT
  Sex: Male
  Weight: 61 kg

DRUGS (8)
  1. CAPECITABINE [Suspect]
     Dosage: DATE OF MOST RECENT ADMINISTRATION: 05 MARCH 2010
     Route: 065
     Dates: start: 20100212
  2. CISPLATIN [Suspect]
     Dosage: DATE OF MOST RECENT ADMINISTRATION: 05 MARCH 2010
     Route: 065
     Dates: start: 20100212
  3. EPIRUBICIN [Suspect]
     Dosage: DATE OF MOST RECENT ADMINISTRATION: 05 MARCH 2010
     Route: 065
     Dates: start: 20100212
  4. METOCLOPRAMIDE [Concomitant]
     Route: 048
     Dates: start: 20100301
  5. BENDROFLUMETHIAZID [Concomitant]
     Route: 048
     Dates: end: 20100225
  6. LISINOPRIL [Concomitant]
     Route: 048
     Dates: end: 20100225
  7. SIMVASTATIN [Concomitant]
     Route: 048
  8. LANSOPRAZOLE [Concomitant]
     Route: 048

REACTIONS (2)
  - LARGE INTESTINE PERFORATION [None]
  - ODYNOPHAGIA [None]
